FAERS Safety Report 5500739-0 (Version None)
Quarter: 2007Q4

REPORT INFORMATION
  Report Type: 
  Country: None (occurrence: None)
  Receive Date: 20071018
  Receipt Date: 20070221
  Transmission Date: 20080405
  Serious: Yes (Other)
  Sender: FDA-Public Use
  Company Number: 2007014998

PATIENT
  Age: 58 Year
  Sex: Female
  Weight: 54.4 kg

DRUGS (2)
  1. NEURONTIN [Suspect]
     Indication: NEURALGIA
     Dates: start: 20070220
  2. ALBUTEROL [Concomitant]

REACTIONS (9)
  - DIAPHRAGMALGIA [None]
  - DRUG HYPERSENSITIVITY [None]
  - DRUG INEFFECTIVE [None]
  - DYSPNOEA [None]
  - HYPOAESTHESIA [None]
  - MUSCULOSKELETAL CHEST PAIN [None]
  - PAIN [None]
  - RESPIRATORY RATE DECREASED [None]
  - WRONG TECHNIQUE IN DRUG USAGE PROCESS [None]
